FAERS Safety Report 5211729-X (Version None)
Quarter: 2007Q1

REPORT INFORMATION
  Report Type: 
  Country: None (occurrence: None)
  Receive Date: 20070116
  Receipt Date: 20070103
  Transmission Date: 20070707
  Serious: No
  Sender: FDA-Public Use
  Company Number: SPV1-2007-00040

PATIENT
  Sex: Male

DRUGS (1)
  1. DAYTRANA [Suspect]
     Dosage: 10 MG, TRANSDERMAL
     Route: 062

REACTIONS (2)
  - PHARMACEUTICAL PRODUCT COMPLAINT [None]
  - URTICARIA GENERALISED [None]
